FAERS Safety Report 5057282-5 (Version None)
Quarter: 2006Q3

REPORT INFORMATION
  Report Type: 
  Country: None (occurrence: None)
  Receive Date: 20060721
  Receipt Date: 20050718
  Transmission Date: 20061208
  Serious: No
  Sender: FDA-Public Use
  Company Number: US-GLAXOSMITHKLINE-A0566677A

PATIENT
  Age: 83 Year
  Sex: Male

DRUGS (7)
  1. AVANDIA [Suspect]
     Dosage: 4MG PER DAY
     Route: 048
     Dates: start: 20050526
  2. ASPIRIN [Concomitant]
  3. COUMADIN [Concomitant]
  4. DIURETIC [Concomitant]
  5. LIPITOR [Concomitant]
  6. ACETAMINOPHEN [Concomitant]
  7. GLUCOVANCE [Concomitant]

REACTIONS (1)
  - DRUG INEFFECTIVE [None]
